FAERS Safety Report 6109527-8 (Version None)
Quarter: 2009Q1

REPORT INFORMATION
  Report Type: 
  Country: None (occurrence: None)
  Receive Date: 20090310
  Receipt Date: 20090227
  Transmission Date: 20090719
  Serious: Yes (Disabling, Other)
  Sender: FDA-Public Use
  Company Number: GB-TEVA-186743ISR

PATIENT
  Age: 66 Year
  Weight: 63.5 kg

DRUGS (1)
  1. CITALOPRAM HYDROBROMIDE [Suspect]
     Indication: MENTAL DISORDER
     Route: 048

REACTIONS (3)
  - DRY MOUTH [None]
  - SJOGREN'S SYNDROME [None]
  - WITHDRAWAL SYNDROME [None]
